FAERS Safety Report 20923193 (Version 1)
Quarter: 2022Q2

REPORT INFORMATION
  Report Type: Spontaneous
  Country: US (occurrence: US)
  Receive Date: 20220607
  Receipt Date: 20220607
  Transmission Date: 20220721
  Serious: No
  Sender: FDA-Public Use
  Company Number: US-GLENMARK PHARMACEUTICALS-2022GMK071723

PATIENT

DRUGS (1)
  1. AZELAIC ACID [Suspect]
     Active Substance: AZELAIC ACID
     Indication: Seborrhoeic keratosis
     Dosage: UNK
     Route: 045

REACTIONS (2)
  - Product use in unapproved indication [Unknown]
  - Intercepted product administration error [Unknown]
